FAERS Safety Report 9311216 (Version 1)
Quarter: 2013Q2

REPORT INFORMATION
  Report Type: Spontaneous
  Country: CN (occurrence: CN)
  Receive Date: 20130528
  Receipt Date: 20130528
  Transmission Date: 20140414
  Serious: Yes (Hospitalization, Other)
  Sender: FDA-Public Use
  Company Number: CN-ROCHE-1228559

PATIENT
  Age: 51 Year
  Sex: Male

DRUGS (3)
  1. XELODA [Suspect]
     Indication: COLON CANCER METASTATIC
     Route: 048
     Dates: start: 20130504, end: 20130512
  2. CISPLATIN [Suspect]
     Indication: COLON CANCER METASTATIC
     Route: 041
     Dates: start: 201305
  3. CIMETIDINE [Suspect]
     Indication: DYSPEPSIA
     Route: 048
     Dates: start: 201305

REACTIONS (7)
  - Fatigue [Recovering/Resolving]
  - Listless [Recovering/Resolving]
  - Tachypnoea [Recovering/Resolving]
  - Suspected counterfeit product [Unknown]
  - Nausea [Not Recovered/Not Resolved]
  - Dyspepsia [Recovered/Resolved]
  - Diarrhoea [Recovered/Resolved]
